FAERS Safety Report 12373519 (Version 1)
Quarter: 2016Q2

REPORT INFORMATION
  Report Type: Spontaneous
  Country: ES (occurrence: ES)
  Receive Date: 20160516
  Receipt Date: 20160516
  Transmission Date: 20160815
  Serious: Yes (Hospitalization)
  Sender: FDA-Public Use
  Company Number: ES-IPCA LABORATORIES LIMITED-IPC201605-000412

PATIENT
  Age: 85 Year
  Sex: Female

DRUGS (11)
  1. IRON SULFATE [Concomitant]
     Active Substance: FERROUS SULFATE ANHYDROUS
  2. SIMVASTATIN. [Concomitant]
     Active Substance: SIMVASTATIN
  3. METFORMIN [Concomitant]
     Active Substance: METFORMIN HYDROCHLORIDE
  4. METOCLOPRAMIDE HYDROCHLORIDE. [Suspect]
     Active Substance: METOCLOPRAMIDE HYDROCHLORIDE
     Indication: NAUSEA
  5. BISOPROLOL [Concomitant]
     Active Substance: BISOPROLOL
  6. ACENOCOUMAROL [Concomitant]
     Active Substance: ACENOCOUMAROL
  7. ESCITALOPRAM [Suspect]
     Active Substance: ESCITALOPRAM OXALATE
  8. AMIODARONE [Suspect]
     Active Substance: AMIODARONE
  9. LOSARTAN. [Concomitant]
     Active Substance: LOSARTAN
  10. BETAHISTINE [Concomitant]
     Active Substance: BETAHISTINE
  11. METOCLOPRAMIDE HYDROCHLORIDE. [Suspect]
     Active Substance: METOCLOPRAMIDE HYDROCHLORIDE
     Indication: VOMITING

REACTIONS (4)
  - Cardio-respiratory arrest [Unknown]
  - Torsade de pointes [Unknown]
  - Hypokalaemia [Recovered/Resolved]
  - Hypomagnesaemia [Recovered/Resolved]
